FAERS Safety Report 19508282 (Version 1)
Quarter: 2021Q3

REPORT INFORMATION
  Report Type: Spontaneous
  Country: US (occurrence: US)
  Receive Date: 20210708
  Receipt Date: 20210708
  Transmission Date: 20211014
  Serious: No
  Sender: FDA-Public Use
  Company Number: US-LNK INTERNATIONAL, INC.-2113613

PATIENT
  Sex: Female

DRUGS (1)
  1. MENSTRUAL RELIEF [Suspect]
     Active Substance: ACETAMINOPHEN\CAFFEINE\PYRILAMINE MALEATE
     Indication: DYSMENORRHOEA

REACTIONS (4)
  - Dyspnoea [None]
  - Dizziness [None]
  - Heart rate increased [None]
  - Speech disorder [None]
